FAERS Safety Report 26024051 (Version 1)
Quarter: 2025Q4

REPORT INFORMATION
  Report Type: Spontaneous
  Country: GB (occurrence: GB)
  Receive Date: 20251111
  Receipt Date: 20251111
  Transmission Date: 20260117
  Serious: Yes (Death)
  Sender: AMGEN
  Company Number: GB-AMGEN-GBRSP2025222004

PATIENT
  Age: 92 Year
  Sex: Male

DRUGS (1)
  1. ARANESP [Suspect]
     Active Substance: DARBEPOETIN ALFA
     Indication: Product used for unknown indication
     Dosage: 60 MILLIGRAM (60 MCG), Q4WK
     Route: 058
     Dates: end: 20251017

REACTIONS (1)
  - Death [Fatal]

NARRATIVE: CASE EVENT DATE: 20251017
